FAERS Safety Report 6753965-7 (Version None)
Quarter: 2010Q2

REPORT INFORMATION
  Report Type: 
  Country: None (occurrence: None)
  Receive Date: 20100603
  Receipt Date: 20100528
  Transmission Date: 20101027
  Serious: Yes (Other)
  Sender: FDA-Public Use
  Company Number: A0862301A

PATIENT

DRUGS (1)
  1. ROSIGLITAZONE MALEATE [Suspect]
     Indication: DRUG USE FOR UNKNOWN INDICATION

REACTIONS (6)
  - CARDIAC ARREST [None]
  - CEREBROVASCULAR ACCIDENT [None]
  - FLUID OVERLOAD [None]
  - FLUID RETENTION [None]
  - HEART INJURY [None]
  - LIVER INJURY [None]
